FAERS Safety Report 11330903 (Version 1)
Quarter: 2015Q3

REPORT INFORMATION
  Report Type: Spontaneous
  Country: LB (occurrence: LB)
  Receive Date: 20150803
  Receipt Date: 20150803
  Transmission Date: 20151125
  Serious: Yes (Death)
  Sender: FDA-Public Use
  Company Number: LB-SA-2015SA110948

PATIENT
  Age: 78 Year
  Sex: Male

DRUGS (3)
  1. TAXOTERE [Suspect]
     Active Substance: DOCETAXEL
     Route: 065
     Dates: start: 20131203, end: 20131218
  2. VINORELBINE [Concomitant]
     Active Substance: VINORELBINE\VINORELBINE TARTRATE
     Dates: start: 20130605, end: 20131001
  3. CARBOPLATIN. [Concomitant]
     Active Substance: CARBOPLATIN
     Dates: start: 20130605, end: 20131001

REACTIONS (1)
  - Death [Fatal]

NARRATIVE: CASE EVENT DATE: 20131221
